FAERS Safety Report 7208424-4 (Version None)
Quarter: 2011Q1

REPORT INFORMATION
  Report Type: 
  Country: None (occurrence: None)
  Receive Date: 20110104
  Receipt Date: 20101222
  Transmission Date: 20110831
  Serious: Yes (Disabling)
  Sender: FDA-Public Use
  Company Number: US-ELI_LILLY_AND_COMPANY-US201012006448

PATIENT
  Sex: Female

DRUGS (8)
  1. NAPROXEN [Concomitant]
  2. SEROQUEL [Concomitant]
  3. VICODIN [Concomitant]
  4. IBUPROFEN [Concomitant]
  5. DARVOCET [Concomitant]
  6. CYMBALTA [Suspect]
     Indication: DEPRESSION
     Dosage: 60 MG, 2/D
     Dates: start: 20090101
  7. FLEXERIL [Concomitant]
  8. SYNTHROID [Concomitant]

REACTIONS (5)
  - HYPOTHYROIDISM [None]
  - PANIC DISORDER [None]
  - ANXIETY [None]
  - CHEST PAIN [None]
  - ADVERSE EVENT [None]
